FAERS Safety Report 6398830-2 (Version None)
Quarter: 2009Q4

REPORT INFORMATION
  Report Type: 
  Country: None (occurrence: None)
  Receive Date: 20091007
  Receipt Date: 20090923
  Transmission Date: 20100525
  Serious: Yes (Hospitalization, Other)
  Sender: FDA-Public Use
  Company Number: 220018J09GBR

PATIENT
  Sex: Male

DRUGS (1)
  1. SAIZEN [Suspect]
     Dosage: 0.8 MG; 0.9 MG
     Dates: start: 20080501

REACTIONS (3)
  - BLISTER [None]
  - CYST [None]
  - JUVENILE ARTHRITIS [None]
